FAERS Safety Report 7196666-6 (Version None)
Quarter: 2010Q4

REPORT INFORMATION
  Report Type: 
  Country: None (occurrence: None)
  Receive Date: 20101223
  Receipt Date: 20101029
  Transmission Date: 20110411
  Serious: No
  Sender: FDA-Public Use
  Company Number: US-AMGEN-USASP2010002368

PATIENT

DRUGS (2)
  1. ENBREL [Suspect]
     Indication: PSORIATIC ARTHROPATHY
     Dates: start: 20041201
  2. ENBREL [Suspect]
     Indication: PSORIASIS

REACTIONS (3)
  - ARTHRALGIA [None]
  - PSORIASIS [None]
  - PSORIATIC ARTHROPATHY [None]
